FAERS Safety Report 17091494 (Version 1)
Quarter: 2019Q4

REPORT INFORMATION
  Report Type: Other
  Country: NL (occurrence: FR)
  Receive Date: 20191129
  Receipt Date: 20191129
  Transmission Date: 20200122
  Serious: Yes (Hospitalization, Other)
  Sender: FDA-Public Use
  Company Number: FR-ASTELLAS-2019US047249

PATIENT
  Age: 85 Year
  Sex: Male

DRUGS (1)
  1. AMBISOME [Suspect]
     Active Substance: AMPHOTERICIN B
     Indication: ASPERGILLUS INFECTION
     Route: 042
     Dates: start: 20190830, end: 20191011

REACTIONS (1)
  - Pancreatitis acute [Recovered/Resolved]

NARRATIVE: CASE EVENT DATE: 20191008
